FAERS Safety Report 10186332 (Version 1)
Quarter: 2014Q2

REPORT INFORMATION
  Report Type: Spontaneous
  Country: US (occurrence: US)
  Receive Date: 20140521
  Receipt Date: 20140521
  Transmission Date: 20141212
  Serious: No
  Sender: FDA-Public Use
  Company Number: US-ASTRAZENECA-2014SE16914

PATIENT
  Age: 72 Year
  Sex: Female
  Weight: 77.1 kg

DRUGS (6)
  1. PULMICORT FLEXHALER [Suspect]
     Indication: BRONCHITIS
     Dosage: 180 MCG ONE PUFF BID
     Route: 055
     Dates: start: 20140306
  2. METOPROLOL TARTRATE [Suspect]
     Indication: BLOOD PRESSURE ABNORMAL
     Route: 065
  3. CELEBREX [Concomitant]
     Indication: ARTHROPATHY
     Route: 048
  4. AMLODIPINE [Concomitant]
     Indication: BLOOD PRESSURE ABNORMAL
     Route: 048
  5. HCTZ [Concomitant]
     Indication: BLOOD PRESSURE ABNORMAL
     Route: 048
  6. LEVOXYL [Concomitant]
     Indication: THYROID DISORDER
     Dosage: 0.1 MG
     Route: 048

REACTIONS (2)
  - Vulvovaginal pruritus [Unknown]
  - Off label use [Unknown]
